FAERS Safety Report 9203909 (Version 1)
Quarter: 2013Q2

REPORT INFORMATION
  Report Type: Spontaneous
  Country: HU (occurrence: HU)
  Receive Date: 20130402
  Receipt Date: 20130402
  Transmission Date: 20140414
  Serious: Yes (Other)
  Sender: FDA-Public Use
  Company Number: HU-SANOFI-AVENTIS-2013SA034291

PATIENT
  Age: 56 Year
  Sex: Female

DRUGS (1)
  1. CHLOROQUINE (SALT NOT SPECIFIED) [Suspect]
     Indication: PRODUCT USED FOR UNKNOWN INDICATION
     Dosage: SUPRAMAXIMAL DOSE
     Route: 065

REACTIONS (5)
  - Atrioventricular block complete [Unknown]
  - Torsade de pointes [Unknown]
  - Electrocardiogram QT prolonged [Unknown]
  - Cardiac arrest [Unknown]
  - Ventricular fibrillation [Unknown]
